FAERS Safety Report 14407674 (Version 1)
Quarter: 2018Q1

REPORT INFORMATION
  Report Type: Spontaneous
  Country: US (occurrence: US)
  Receive Date: 20180117
  Receipt Date: 20180117
  Transmission Date: 20180509
  Serious: Yes (Disabling)
  Sender: FDA-Public Use
  Company Number: None

PATIENT
  Age: 31 Year
  Sex: Female
  Weight: 90 kg

DRUGS (3)
  1. MAGNESIUM [Concomitant]
     Active Substance: MAGNESIUM
  2. SERTRALINE 100 MG TABLETS [Suspect]
     Active Substance: SERTRALINE HYDROCHLORIDE
     Indication: PREMENSTRUAL SYNDROME
     Dosage: ?          QUANTITY:30 TABLET(S);OTHER FREQUENCY:7-10 PRIOR  PERIOD;?ORAL
     Route: 048
  3. VITAMIN D [Concomitant]
     Active Substance: CHOLECALCIFEROL

REACTIONS (7)
  - Hyperhidrosis [None]
  - Muscle spasms [None]
  - Breast pain [None]
  - Headache [None]
  - Breast engorgement [None]
  - Vision blurred [None]
  - Feeling hot [None]

NARRATIVE: CASE EVENT DATE: 20180109
